FAERS Safety Report 7492051-8 (Version None)
Quarter: 2011Q2

REPORT INFORMATION
  Report Type: 
  Country: None (occurrence: None)
  Receive Date: 20110519
  Receipt Date: 20110511
  Transmission Date: 20111010
  Serious: Yes (Death)
  Sender: FDA-Public Use
  Company Number: US-JNJFOC-20071004548

PATIENT
  Age: 3 Month
  Sex: Male
  Weight: 6.8 kg

DRUGS (4)
  1. PSEUDOEPHEDRINE HCL [Suspect]
     Indication: ILL-DEFINED DISORDER
  2. DOXYLAMINE SUCCINATE [Suspect]
     Indication: ILL-DEFINED DISORDER
  3. DEXTROMETHORPHAN HYDROBROMIDE [Suspect]
     Indication: ILL-DEFINED DISORDER
  4. CHLORPHENIRAMINE MALEATE [Suspect]
     Indication: ILL-DEFINED DISORDER

REACTIONS (2)
  - SUDDEN INFANT DEATH SYNDROME [None]
  - TOXICITY TO VARIOUS AGENTS [None]
